FAERS Safety Report 9034999 (Version 1)
Quarter: 2013Q1

REPORT INFORMATION
  Report Type: Spontaneous
  Country: DK (occurrence: None)
  Receive Date: 20130118
  Receipt Date: 20130118
  Transmission Date: 20140127
  Serious: Yes (Hospitalization, Other)
  Sender: FDA-Public Use
  Company Number: 2013MA000423

PATIENT
  Sex: Male

DRUGS (3)
  1. BISOPROLOL FUMARATE AND HYDROCHLOROTHIAZIDE [Suspect]
     Indication: HYPERTENSION
     Route: 048
     Dates: start: 20121210, end: 20121215
  2. METFORMIN HYDROCHLORIDE EXTENDED-RELEASE [Suspect]
     Route: 048
     Dates: start: 20121210
  3. VICTOZA [Suspect]
     Route: 030
     Dates: start: 20121210, end: 20121215

REACTIONS (3)
  - Tachycardia [None]
  - Blood glucose increased [None]
  - Headache [None]
